FAERS Safety Report 6879890-9 (Version None)
Quarter: 2010Q3

REPORT INFORMATION
  Report Type: 
  Country: None (occurrence: None)
  Receive Date: 20100727
  Receipt Date: 20081113
  Transmission Date: 20110219
  Serious: No
  Sender: FDA-Public Use
  Company Number: US-ABBOTT-08P-163-0487874-00

PATIENT
  Sex: Female
  Weight: 68.1 kg

DRUGS (3)
  1. LEVOTHYROXINE [Suspect]
     Indication: HYPOTHYROIDISM
     Route: 048
     Dates: start: 20080101
  2. LEVOTHYROXINE [Suspect]
     Route: 048
  3. VITAMIN D [Concomitant]
     Indication: OSTEOPOROSIS
     Route: 048
     Dates: start: 20080101

REACTIONS (1)
  - PALPITATIONS [None]
